FAERS Safety Report 17880773 (Version 1)
Quarter: 2020Q2

REPORT INFORMATION
  Report Type: Spontaneous
  Country: US (occurrence: US)
  Receive Date: 20200610
  Receipt Date: 20200610
  Transmission Date: 20200714
  Serious: Yes (Life-Threatening, Hospitalization)
  Sender: FDA-Public Use
  Company Number: US-MYLANLABS-2020M1055181

PATIENT
  Age: 14 Month
  Sex: Male

DRUGS (1)
  1. HEPARIN [Suspect]
     Active Substance: HEPARIN SODIUM
     Indication: ANTICOAGULANT THERAPY
     Dosage: UNK
     Route: 065

REACTIONS (6)
  - Intraventricular haemorrhage [Unknown]
  - Brain midline shift [Unknown]
  - Haemorrhage intracranial [Unknown]
  - Hydrocephalus [Unknown]
  - Brain oedema [Unknown]
  - Intracranial pressure increased [Unknown]
